FAERS Safety Report 9617820 (Version 3)
Quarter: 2014Q2

REPORT INFORMATION
  Report Type: Spontaneous
  Country: IT (occurrence: IT)
  Receive Date: 20131011
  Receipt Date: 20140404
  Transmission Date: 20141212
  Serious: Yes (Hospitalization)
  Sender: FDA-Public Use
  Company Number: IT-B.I. PHARMACEUTICALS,INC./RIDGEFIELD-2013-BI-32070IT

PATIENT
  Age: 74 Year
  Sex: Female
  Weight: 80 kg

DRUGS (3)
  1. MOBIC [Suspect]
     Indication: PAIN MANAGEMENT
     Route: 014
     Dates: start: 20130902, end: 20130902
  2. CHIROCAINE [Suspect]
     Indication: PAIN MANAGEMENT
     Route: 014
     Dates: start: 20130902, end: 20130902
  3. TRIAMVIRGI [Concomitant]
     Indication: PAIN MANAGEMENT
     Route: 014
     Dates: start: 20130902, end: 20130902

REACTIONS (2)
  - Respiratory failure [Recovered/Resolved]
  - Hypotension [Recovered/Resolved]
